FAERS Safety Report 25956697 (Version 1)
Quarter: 2025Q4

REPORT INFORMATION
  Report Type: Spontaneous
  Country: US (occurrence: US)
  Receive Date: 20251024
  Receipt Date: 20251024
  Transmission Date: 20260117
  Serious: No
  Sender: GLENMARK
  Company Number: US-GLENMARK PHARMACEUTICALS-2025GMK097859

PATIENT

DRUGS (1)
  1. VORICONAZOLE [Suspect]
     Active Substance: VORICONAZOLE
     Indication: Pneumonia fungal
     Dosage: UNK
     Route: 065
     Dates: start: 202202, end: 202208

REACTIONS (2)
  - Fatigue [Not Recovered/Not Resolved]
  - Weight decreased [Recovered/Resolved]
